FAERS Safety Report 20859516 (Version 1)
Quarter: 2022Q2

REPORT INFORMATION
  Report Type: Other
  Country: AU (occurrence: AU)
  Receive Date: 20220523
  Receipt Date: 20220523
  Transmission Date: 20220721
  Serious: No
  Sender: FDA-Public Use
  Company Number: AU-TOLMAR, INC.-22AU032524

PATIENT
  Age: 74 Year
  Sex: Male

DRUGS (1)
  1. ELIGARD [Suspect]
     Active Substance: LEUPROLIDE ACETATE
     Indication: Prostate cancer
     Dosage: 22.5 MILLIGRAM, Q 3 MONTH
     Dates: start: 20210713

REACTIONS (5)
  - Fall [Unknown]
  - Contusion [Unknown]
  - Weight increased [Unknown]
  - Gynaecomastia [Unknown]
  - Back pain [Unknown]

NARRATIVE: CASE EVENT DATE: 20211230
